FAERS Safety Report 14330806 (Version 1)
Quarter: 2017Q4

REPORT INFORMATION
  Report Type: Spontaneous
  Country: TW (occurrence: TW)
  Receive Date: 20171228
  Receipt Date: 20171228
  Transmission Date: 20180321
  Serious: Yes (Other)
  Sender: FDA-Public Use
  Company Number: TW-CONCORDIA PHARMACEUTICALS INC.-E2B_00009079

PATIENT
  Age: 35 Year
  Sex: Male

DRUGS (4)
  1. PREDNISOLONE. [Suspect]
     Active Substance: PREDNISOLONE
     Indication: UVEITIS
     Dosage: PREDNISOLONE: 1%
     Route: 061
  2. BRIMONIDINE 0.15% [Concomitant]
     Indication: UVEITIS
     Dosage: BRIMONIDINE: 0.15%
  3. ACETAZOLAMIDE. [Concomitant]
     Active Substance: ACETAZOLAMIDE
     Indication: UVEITIS
  4. TIMOLOL 0.5%/DORZOLAMIDE  2% [Concomitant]
     Indication: UVEITIS
     Dosage: DORZOLAMIDE: 2%; TIMOLOL: 0.5%

REACTIONS (2)
  - Glaucoma [Recovered/Resolved]
  - Keratitis [Recovered/Resolved]
